FAERS Safety Report 13679766 (Version 3)
Quarter: 2017Q3

REPORT INFORMATION
  Report Type: Spontaneous
  Country: US (occurrence: US)
  Receive Date: 20170622
  Receipt Date: 20170808
  Transmission Date: 20171127
  Serious: Yes (Other)
  Sender: FDA-Public Use
  Company Number: US-MYLANLABS-2017M1036365

PATIENT

DRUGS (2)
  1. MIDODRINE [Suspect]
     Active Substance: MIDODRINE
     Indication: ORTHOSTATIC HYPOTENSION
     Dosage: UNK
  2. NORTHERA [Suspect]
     Active Substance: DROXIDOPA
     Indication: ORTHOSTATIC HYPOTENSION
     Dosage: 600 MG, TID
     Route: 048
     Dates: start: 201704

REACTIONS (6)
  - Peripheral swelling [Unknown]
  - Atrioventricular block [Unknown]
  - Loss of consciousness [Unknown]
  - Gait disturbance [Unknown]
  - Drug ineffective [Unknown]
  - Amyloidosis [Unknown]

NARRATIVE: CASE EVENT DATE: 20170526
